FAERS Safety Report 10283051 (Version 3)
Quarter: 2014Q3

REPORT INFORMATION
  Report Type: Spontaneous
  Country: JP (occurrence: JP)
  Receive Date: 20140708
  Receipt Date: 20140730
  Transmission Date: 20150326
  Serious: Yes (Other)
  Sender: FDA-Public Use
  Company Number: JP-BRISTOL-MYERS SQUIBB COMPANY-21170345

PATIENT
  Age: 40 Year
  Sex: Male

DRUGS (2)
  1. ABILIFY [Suspect]
     Active Substance: ARIPIPRAZOLE
     Indication: SCHIZOPHRENIA
     Dosage: 11JUN2014-11JUN2014:30MG?12JUN2014-ONG:24MG
     Route: 048
     Dates: start: 20140611
  2. BIPERIDEN HCL [Suspect]
     Active Substance: BIPERIDEN HYDROCHLORIDE
     Route: 048
     Dates: end: 20140611

REACTIONS (2)
  - Bradycardia [Recovering/Resolving]
  - Blood pressure decreased [Recovering/Resolving]

NARRATIVE: CASE EVENT DATE: 20140611
